FAERS Safety Report 11225518 (Version 1)
Quarter: 2015Q2

REPORT INFORMATION
  Report Type: Spontaneous
  Country: US (occurrence: None)
  Receive Date: 20150626
  Receipt Date: 20150626
  Transmission Date: 20150821
  Serious: Yes (Other)
  Sender: FDA-Public Use
  Company Number: None

PATIENT
  Age: 55 Year
  Sex: Female
  Weight: 112.49 kg

DRUGS (8)
  1. TECFIDERA [Concomitant]
     Active Substance: DIMETHYL FUMARATE
  2. PROBIOTIC [Concomitant]
     Active Substance: PROBIOTICS NOS
  3. AMLODIPINE BESYLATE. [Concomitant]
     Active Substance: AMLODIPINE BESYLATE
  4. SPIRULINA [Concomitant]
     Active Substance: SPIRULINA
  5. KETOCONAZOLE EXTINA 2% PRESTIUM PHARMA [Suspect]
     Active Substance: KETOCONAZOLE
     Indication: PRURITUS
     Dosage: APPLIED TO A SURFACE, USUALLY THE SKIN
     Dates: start: 20150612, end: 20150623
  6. KETOCONAZOLE EXTINA 2% PRESTIUM PHARMA [Suspect]
     Active Substance: KETOCONAZOLE
     Indication: FUNGAL INFECTION
     Dosage: APPLIED TO A SURFACE, USUALLY THE SKIN
     Dates: start: 20150612, end: 20150623
  7. KETOCONAZOLE EXTINA 2% PRESTIUM PHARMA [Suspect]
     Active Substance: KETOCONAZOLE
     Indication: SKIN EXFOLIATION
     Dosage: APPLIED TO A SURFACE, USUALLY THE SKIN
     Dates: start: 20150612, end: 20150623
  8. TUMERIC [Concomitant]

REACTIONS (3)
  - Dizziness [None]
  - Respiratory disorder [None]
  - Palpitations [None]

NARRATIVE: CASE EVENT DATE: 20150623
